FAERS Safety Report 7902908-9 (Version None)
Quarter: 2011Q4

REPORT INFORMATION
  Report Type: 
  Country: None (occurrence: None)
  Receive Date: 20111107
  Receipt Date: 20111021
  Transmission Date: 20120403
  Serious: Yes (Hospitalization)
  Sender: FDA-Public Use
  Company Number: 2011MA015596

PATIENT
  Age: 43 Year
  Sex: Female

DRUGS (3)
  1. CITALOPRAM HYDROBROMIDE [Suspect]
     Indication: DEPRESSION
     Dosage: 20 MG;
  2. CANDESARTAN CILEXETIL [Concomitant]
  3. ANGIOTENSION RECEPTOR BLOCKERS [Concomitant]

REACTIONS (3)
  - AGITATION [None]
  - ACUTE PSYCHOSIS [None]
  - MALAISE [None]
